FAERS Safety Report 18593269 (Version 1)
Quarter: 2020Q4

REPORT INFORMATION
  Report Type: Spontaneous
  Country: NO (occurrence: NO)
  Receive Date: 20201208
  Receipt Date: 20201208
  Transmission Date: 20210114
  Serious: Yes (Life-Threatening)
  Sender: FDA-Public Use
  Company Number: NO-ELI_LILLY_AND_COMPANY-NO202012001152

PATIENT
  Age: 39 Year
  Sex: Female
  Weight: 70 kg

DRUGS (4)
  1. ZYPADHERA [Suspect]
     Active Substance: OLANZAPINE PAMOATE
     Indication: PSYCHOTIC DISORDER
     Dosage: UNK UNK, UNKNOWN
     Route: 065
     Dates: start: 20130813, end: 20191119
  2. PARACETAMOL [Concomitant]
     Active Substance: ACETAMINOPHEN
     Indication: PRODUCT USED FOR UNKNOWN INDICATION
  3. ZYPADHERA [Suspect]
     Active Substance: OLANZAPINE PAMOATE
     Indication: PSYCHOTIC DISORDER
     Dosage: UNK UNK, UNKNOWN
     Route: 065
     Dates: start: 20130813, end: 20191119
  4. ZYPADHERA [Suspect]
     Active Substance: OLANZAPINE PAMOATE
     Indication: PSYCHOTIC DISORDER
     Dosage: UNK UNK, UNKNOWN
     Route: 065
     Dates: start: 20130813, end: 20191119

REACTIONS (5)
  - Memory impairment [Unknown]
  - Disturbance in attention [Unknown]
  - Amnesia [Unknown]
  - Aphasia [Unknown]
  - Dementia [Unknown]

NARRATIVE: CASE EVENT DATE: 20190107
